FAERS Safety Report 9496506 (Version 1)
Quarter: 2013Q3

REPORT INFORMATION
  Report Type: Spontaneous
  Country: JP (occurrence: JP)
  Receive Date: 20130904
  Receipt Date: 20130904
  Transmission Date: 20140515
  Serious: Yes (Death)
  Sender: FDA-Public Use
  Company Number: PHHY2013JP096599

PATIENT
  Sex: 0

DRUGS (1)
  1. VOLTAREN [Suspect]
     Dosage: UNK UKN, UNK
     Route: 054

REACTIONS (1)
  - Death [Fatal]
